FAERS Safety Report 24386598 (Version 1)
Quarter: 2024Q4

REPORT INFORMATION
  Report Type: Spontaneous
  Country: HU (occurrence: HU)
  Receive Date: 20241002
  Receipt Date: 20241002
  Transmission Date: 20250115
  Serious: Yes (Other)
  Sender: BIOGEN
  Company Number: HU-BIOGEN-2024BI01284305

PATIENT
  Age: 44 Year
  Sex: Female

DRUGS (7)
  1. TYSABRI [Suspect]
     Active Substance: NATALIZUMAB
     Indication: Multiple sclerosis
     Route: 050
     Dates: start: 201708
  2. IMURAN [Concomitant]
     Active Substance: AZATHIOPRINE
     Indication: Crohn^s disease
     Dosage: STOPPED NOVEMBER 2017
     Route: 050
     Dates: start: 2011, end: 201711
  3. Salofalk [Concomitant]
     Indication: Product used for unknown indication
     Route: 050
     Dates: start: 2011
  4. Covid vaccine [Concomitant]
     Indication: COVID-19 prophylaxis
     Route: 050
     Dates: start: 20210107
  5. Covid vaccine [Concomitant]
     Route: 050
     Dates: start: 20210128
  6. REBIF [Concomitant]
     Active Substance: INTERFERON BETA-1A
     Indication: Multiple sclerosis
     Route: 050
     Dates: start: 200108
  7. REBIF [Concomitant]
     Active Substance: INTERFERON BETA-1A
     Route: 050
     Dates: start: 202206

REACTIONS (1)
  - Crohn^s disease [Unknown]

NARRATIVE: CASE EVENT DATE: 20170801
